FAERS Safety Report 24858344 (Version 1)
Quarter: 2025Q1

REPORT INFORMATION
  Report Type: Spontaneous
  Country: NL (occurrence: NL)
  Receive Date: 20250117
  Receipt Date: 20250117
  Transmission Date: 20250409
  Serious: Yes (Death, Other)
  Sender: JAZZ
  Company Number: NL-JAZZ PHARMACEUTICALS-2025-NL-001384

PATIENT

DRUGS (2)
  1. CANNABIDIOL [Suspect]
     Active Substance: CANNABIDIOL
     Indication: Lennox-Gastaut syndrome
     Route: 048
  2. CLOBAZAM [Suspect]
     Active Substance: CLOBAZAM
     Indication: Lennox-Gastaut syndrome

REACTIONS (1)
  - Death [Fatal]
